FAERS Safety Report 5625049-2 (Version None)
Quarter: 2008Q1

REPORT INFORMATION
  Report Type: 
  Country: None (occurrence: None)
  Receive Date: 20080208
  Receipt Date: 20080123
  Transmission Date: 20080703
  Serious: Yes (Hospitalization)
  Sender: FDA-Public Use
  Company Number: DSA_31138_2008

PATIENT
  Sex: Male

DRUGS (2)
  1. LORAZEPAM [Suspect]
     Dosage: (20 DF 1X NOT THE PRESCIBED AMOUNT. ORAL)
     Route: 048
     Dates: start: 20080101, end: 20080101
  2. LEVOMEPROMAZINE (LEVOMEPROMAZINE) [Suspect]
     Dosage: (5-10 TABLETS. NOT THE PRESCRIBED AMOUNT. ORAL)
     Route: 048
     Dates: start: 20080101, end: 20080101

REACTIONS (4)
  - MULTIPLE DRUG OVERDOSE INTENTIONAL [None]
  - PUPILLARY REFLEX IMPAIRED [None]
  - SOMNOLENCE [None]
  - SUICIDE ATTEMPT [None]
